FAERS Safety Report 18315345 (Version 1)
Quarter: 2020Q3

REPORT INFORMATION
  Report Type: Report from Study
  Country: IT (occurrence: IT)
  Receive Date: 20200926
  Receipt Date: 20200926
  Transmission Date: 20201103
  Serious: Yes (Hospitalization, Other)
  Sender: FDA-Public Use
  Company Number: IT-ACCORD-202765

PATIENT
  Age: 76 Year
  Sex: Male

DRUGS (4)
  1. DOXAZOSIN [Suspect]
     Active Substance: DOXAZOSIN MESYLATE
     Indication: HYPERTENSION
     Route: 048
     Dates: start: 20130101
  2. CARDIOASPIRIN [Concomitant]
     Active Substance: ASPIRIN
  3. LOBIDIUR [Interacting]
     Active Substance: HYDROCHLOROTHIAZIDE\NEBIVOLOL HYDROCHLORIDE
     Indication: HYPERTENSION
     Dosage: STRENGTH: 5 MG/25MG
     Route: 048
     Dates: start: 20130101
  4. SEROQUEL [Concomitant]
     Active Substance: QUETIAPINE FUMARATE

REACTIONS (6)
  - Face injury [Unknown]
  - Wound [Unknown]
  - Drug interaction [Unknown]
  - Syncope [Unknown]
  - Dizziness [Unknown]
  - Tooth avulsion [Unknown]

NARRATIVE: CASE EVENT DATE: 20200806
